FAERS Safety Report 16760290 (Version 3)
Quarter: 2019Q3

REPORT INFORMATION
  Report Type: Spontaneous
  Country: US (occurrence: US)
  Receive Date: 20190830
  Receipt Date: 20190904
  Transmission Date: 20191005
  Serious: No
  Sender: FDA-Public Use
  Company Number: US-PFIZER INC-2019371516

PATIENT
  Age: 67 Year
  Sex: Female

DRUGS (3)
  1. DULOXETINE. [Suspect]
     Active Substance: DULOXETINE
     Dosage: UNK
  2. DESVENLAFAXINE SUCCINATE MONOHYDRATE [Suspect]
     Active Substance: DESVENLAFAXINE SUCCINATE
     Indication: MAJOR DEPRESSION
     Dosage: 25 MG, 1X/DAY
     Route: 048
  3. DESVENLAFAXINE SUCCINATE MONOHYDRATE [Suspect]
     Active Substance: DESVENLAFAXINE SUCCINATE
     Indication: PSYCHOTIC DISORDER

REACTIONS (21)
  - Dry eye [Unknown]
  - Emotional disorder [Unknown]
  - Feeling abnormal [Unknown]
  - Confusional state [Unknown]
  - Product complaint [Unknown]
  - Anger [Unknown]
  - Disturbance in attention [Unknown]
  - Balance disorder [Unknown]
  - Anxiety [Unknown]
  - Dry mouth [Unknown]
  - Agitation [Unknown]
  - Constipation [Unknown]
  - Nausea [Unknown]
  - Attention deficit/hyperactivity disorder [Unknown]
  - Dizziness [Unknown]
  - Palpitations [Unknown]
  - Nervousness [Unknown]
  - Impaired driving ability [Unknown]
  - Fatigue [Unknown]
  - Discomfort [Unknown]
  - Tachyphrenia [Unknown]
